FAERS Safety Report 5938309-2 (Version None)
Quarter: 2008Q4

REPORT INFORMATION
  Report Type: 
  Country: None (occurrence: None)
  Receive Date: 20081103
  Receipt Date: 20081027
  Transmission Date: 20090506
  Serious: Yes (Hospitalization, Other)
  Sender: FDA-Public Use
  Company Number: GB-RANBAXY-2008RR-18909

PATIENT
  Age: 44 Year
  Sex: Female

DRUGS (5)
  1. CIPROFLOXACIN [Suspect]
     Indication: PYELONEPHRITIS
     Dosage: 500 MG, BID
  2. CIPROFLOXACIN [Suspect]
     Dosage: 1000 MG, UNK
  3. SOTALOL HCL [Suspect]
     Indication: ATRIAL FIBRILLATION
     Route: 065
  4. DIGOXIN [Concomitant]
     Indication: ATRIAL FIBRILLATION
     Route: 065
  5. WARFARIN SODIUM [Concomitant]
     Indication: ATRIAL FIBRILLATION
     Route: 065

REACTIONS (2)
  - ELECTROCARDIOGRAM QT PROLONGED [None]
  - TORSADE DE POINTES [None]
